FAERS Safety Report 5404358-6 (Version None)
Quarter: 2007Q3

REPORT INFORMATION
  Report Type: 
  Country: None (occurrence: None)
  Receive Date: 20070711
  Receipt Date: 20070702
  Transmission Date: 20080115
  Serious: Yes (Hospitalization, Other)
  Sender: FDA-Public Use
  Company Number: 249754

PATIENT
  Age: 54 Year
  Sex: Female
  Weight: 49.4 kg

DRUGS (10)
  1. ACTIVELLA [Suspect]
     Indication: MENOPAUSAL SYMPTOMS
     Dosage: ORAL
     Route: 048
     Dates: start: 20020924, end: 20050124
  2. FOSAMAX [Concomitant]
  3. EFFEXOR [Concomitant]
  4. CLORAZEPATE DIPOTASSIUM [Concomitant]
  5. AUGMENTIN '125' [Concomitant]
  6. VALIUM [Concomitant]
  7. LAMISIL [Concomitant]
  8. XANAX [Concomitant]
  9. METABOLIFE (GINSENG NOS, HERBAL EXTERACT NOS, PAULLINIA CUPANA, SMILAX [Concomitant]
  10. ASPIRIN [Concomitant]

REACTIONS (1)
  - BREAST CANCER [None]
